FAERS Safety Report 6440762-5 (Version None)
Quarter: 2009Q4

REPORT INFORMATION
  Report Type: 
  Country: None (occurrence: None)
  Receive Date: 20091116
  Receipt Date: 20091005
  Transmission Date: 20100525
  Serious: Yes (Other)
  Sender: FDA-Public Use
  Company Number: US-RANBAXY-2009US-24944

PATIENT

DRUGS (28)
  1. ZIDOVUDINE [Suspect]
     Indication: HIV INFECTION
     Dosage: UNK, UNK
     Route: 065
  2. ZIDOVUDINE [Suspect]
     Indication: PNEUMOCYSTIS JIROVECI INFECTION
  3. SULFAMETHOXAZOLE AND TRIMETHOPRIM [Suspect]
     Indication: LUNG INFECTION
     Route: 065
  4. INDINAVIR [Suspect]
     Indication: PNEUMOCYSTIS JIROVECI INFECTION
     Route: 065
  5. INDINAVIR [Suspect]
     Indication: HIV INFECTION
  6. LAMIVUDINE [Suspect]
     Indication: PNEUMOCYSTIS JIROVECI INFECTION
     Route: 065
  7. LAMIVUDINE [Suspect]
     Indication: HIV INFECTION
  8. NEVIRAPINE [Suspect]
     Indication: PNEUMOCYSTIS JIROVECI INFECTION
     Route: 065
  9. NEVIRAPINE [Suspect]
     Indication: HIV INFECTION
  10. STAVUDINE [Suspect]
     Indication: PNEUMOCYSTIS JIROVECI INFECTION
     Route: 065
  11. STAVUDINE [Suspect]
     Indication: HIV INFECTION
  12. ABACAVIR SULFATE [Suspect]
     Indication: PNEUMOCYSTIS JIROVECI INFECTION
     Route: 065
  13. ABACAVIR SULFATE [Suspect]
     Indication: HIV INFECTION
  14. TENOFOVIR DISOPROXIL FUMARATE [Suspect]
     Indication: PNEUMOCYSTIS JIROVECI INFECTION
     Dosage: UNK
     Route: 065
     Dates: start: 20020901
  15. TENOFOVIR DISOPROXIL FUMARATE [Suspect]
     Indication: HIV INFECTION
  16. FOSAMPRENAVIR/RITONAVIR [Suspect]
     Indication: PNEUMOCYSTIS JIROVECI INFECTION
     Route: 065
  17. FOSAMPRENAVIR/RITONAVIR [Suspect]
     Indication: HIV INFECTION
  18. DIDANOSINE [Suspect]
     Indication: HIV INFECTION
  19. DIDANOSINE [Suspect]
     Indication: PNEUMOCYSTIS JIROVECI INFECTION
  20. ATORVASTATIN [Concomitant]
     Indication: BLOOD CHOLESTEROL INCREASED
     Dosage: 10 MG DAILY
     Route: 065
  21. ATORVASTATIN [Concomitant]
     Indication: BLOOD TRIGLYCERIDES INCREASED
  22. PRAVASTATIN [Concomitant]
     Indication: BLOOD CHOLESTEROL INCREASED
     Dosage: 20 MG DAILY
     Route: 065
  23. PRAVASTATIN [Concomitant]
     Indication: BLOOD TRIGLYCERIDES INCREASED
     Dosage: 40 MG DAILY
  24. FENOFIBRATE [Concomitant]
     Indication: LIPIDS INCREASED
     Dosage: 48 MG DAILY
  25. FENOFIBRATE [Concomitant]
     Dosage: 145 MG DAILY
  26. EMTRICITABINE [Suspect]
     Indication: DRUG USE FOR UNKNOWN INDICATION
  27. EPZICOM [Suspect]
     Indication: PNEUMOCYSTIS JIROVECI INFECTION
  28. EPZICOM [Suspect]
     Indication: HIV INFECTION

REACTIONS (13)
  - BLOOD CHOLESTEROL INCREASED [None]
  - BLOOD TRIGLYCERIDES INCREASED [None]
  - CENTRAL OBESITY [None]
  - DYSLIPIDAEMIA [None]
  - FATIGUE [None]
  - INCREASED APPETITE [None]
  - LIPIDS INCREASED [None]
  - LIPODYSTROPHY ACQUIRED [None]
  - QUALITY OF LIFE DECREASED [None]
  - SLEEP APNOEA SYNDROME [None]
  - SLEEP DISORDER [None]
  - SOMNOLENCE [None]
  - WEIGHT INCREASED [None]
